FAERS Safety Report 8546127-4 (Version None)
Quarter: 2012Q3

REPORT INFORMATION
  Report Type: 
  Country: None (occurrence: None)
  Receive Date: 20120727
  Receipt Date: 20111212
  Transmission Date: 20120928
  Serious: No
  Sender: FDA-Public Use
  Company Number: US-ASTRAZENECA-2011SE75019

PATIENT
  Sex: Female

DRUGS (9)
  1. LEVOTHYROXINE SODIUM [Concomitant]
  2. ZYDAMIL [Concomitant]
  3. CORMITIUM [Concomitant]
  4. LITHIUM CARBONATE [Concomitant]
  5. ESTRADIOL [Concomitant]
  6. PARNATE [Concomitant]
  7. CLONOPIN [Concomitant]
  8. TRAZIDONE [Concomitant]
  9. SEROQUEL [Suspect]
     Indication: MAJOR DEPRESSION
     Route: 048

REACTIONS (3)
  - CHILLS [None]
  - BURNING SENSATION [None]
  - WRONG TECHNIQUE IN DRUG USAGE PROCESS [None]
